FAERS Safety Report 5623430-9 (Version None)
Quarter: 2008Q1

REPORT INFORMATION
  Report Type: 
  Country: None (occurrence: None)
  Receive Date: 20080212
  Receipt Date: 20080131
  Transmission Date: 20080703
  Serious: Yes (Other)
  Sender: FDA-Public Use
  Company Number: US-PFIZER INC-2007104077

PATIENT
  Sex: Female

DRUGS (1)
  1. DILANTIN [Suspect]
     Dosage: DAILY DOSE:300MG

REACTIONS (19)
  - ASTHENIA [None]
  - AURA [None]
  - BALANCE DISORDER [None]
  - CRYING [None]
  - DISCOMFORT [None]
  - DIZZINESS [None]
  - DRUG INEFFECTIVE [None]
  - DYSARTHRIA [None]
  - DYSGEUSIA [None]
  - HEARING IMPAIRED [None]
  - HYPERSOMNIA [None]
  - MALAISE [None]
  - PHOTOSENSITIVITY REACTION [None]
  - SPEECH DISORDER [None]
  - STRESS [None]
  - TREMOR [None]
  - TUNNEL VISION [None]
  - URINE ODOUR ABNORMAL [None]
  - VISION BLURRED [None]
